FAERS Safety Report 6238851-3 (Version None)
Quarter: 2009Q2

REPORT INFORMATION
  Report Type: 
  Country: None (occurrence: None)
  Receive Date: 20090622
  Receipt Date: 20090612
  Transmission Date: 20091009
  Serious: Yes (Hospitalization)
  Sender: FDA-Public Use
  Company Number: AU-JNJFOC-20090604068

PATIENT

DRUGS (6)
  1. TMC125 [Suspect]
     Route: 048
  2. TMC125 [Suspect]
     Indication: HIV INFECTION
     Route: 048
  3. RALTEGRAVIR [Suspect]
     Indication: HIV INFECTION
  4. MARAVIROC [Suspect]
     Indication: HIV INFECTION
  5. KIVEXA [Suspect]
     Indication: HIV INFECTION
  6. TENOFOVIR [Suspect]
     Indication: HIV INFECTION

REACTIONS (1)
  - ARTHRALGIA [None]
